FAERS Safety Report 18480893 (Version 1)
Quarter: 2020Q4

REPORT INFORMATION
  Report Type: Spontaneous
  Country: US (occurrence: US)
  Receive Date: 20201109
  Receipt Date: 20201109
  Transmission Date: 20210114
  Serious: No
  Sender: FDA-Public Use
  Company Number: None

PATIENT

DRUGS (1)
  1. CARBAMAZEPINE. [Suspect]
     Active Substance: CARBAMAZEPINE
     Dates: start: 20200804

REACTIONS (5)
  - Rash maculo-papular [None]
  - Rash erythematous [None]
  - Rash [None]
  - Drug ineffective [None]
  - Rash macular [None]

NARRATIVE: CASE EVENT DATE: 20200817
